FAERS Safety Report 7458388-3 (Version None)
Quarter: 2011Q2

REPORT INFORMATION
  Report Type: 
  Country: None (occurrence: None)
  Receive Date: 20110504
  Receipt Date: 20110407
  Transmission Date: 20111010
  Serious: Yes (Other)
  Sender: FDA-Public Use
  Company Number: A0923026A

PATIENT
  Age: 31 Year
  Sex: Male
  Weight: 76.8 kg

DRUGS (1)
  1. PAXIL [Suspect]
     Route: 048

REACTIONS (1)
  - DRUG SCREEN FALSE POSITIVE [None]
